FAERS Safety Report 14321355 (Version 2)
Quarter: 2018Q1

REPORT INFORMATION
  Report Type: Report from Study
  Country: HN (occurrence: HN)
  Receive Date: 20171223
  Receipt Date: 20180108
  Transmission Date: 20180509
  Serious: Yes (Other)
  Sender: FDA-Public Use
  Company Number: PHHY2017HN191110

PATIENT
  Sex: Female
  Weight: 148 kg

DRUGS (5)
  1. ASPIRETINA [Concomitant]
     Indication: PRODUCT USED FOR UNKNOWN INDICATION
     Route: 065
  2. GLIBENCLAMIDE [Concomitant]
     Active Substance: GLYBURIDE
     Indication: PRODUCT USED FOR UNKNOWN INDICATION
     Route: 065
  3. TRAYENTA [Concomitant]
     Active Substance: LINAGLIPTIN
     Indication: PRODUCT USED FOR UNKNOWN INDICATION
     Route: 065
  4. EXFORGE [Suspect]
     Active Substance: AMLODIPINE BESYLATE\VALSARTAN
     Dosage: 0.5 DF (AMLODIPINE 10 MG, VALSARTAN 320 MG), QD
     Route: 048
  5. EXFORGE [Suspect]
     Active Substance: AMLODIPINE BESYLATE\VALSARTAN
     Indication: HYPERTENSION
     Dosage: 1 DF (AMLODIPINE 10 MG, VALSARTAN 320 MG), QD
     Route: 048

REACTIONS (6)
  - Head discomfort [Unknown]
  - Eye pruritus [Recovering/Resolving]
  - Drug prescribing error [Unknown]
  - Wrong technique in product usage process [Unknown]
  - Tremor [Recovering/Resolving]
  - Facial paralysis [Recovering/Resolving]
